FAERS Safety Report 21342916 (Version 2)
Quarter: 2022Q4

REPORT INFORMATION
  Report Type: Spontaneous
  Country: US (occurrence: US)
  Receive Date: 20220916
  Receipt Date: 20221014
  Transmission Date: 20230112
  Serious: No
  Sender: FDA-Public Use
  Company Number: US-BRISTOL-MYERS SQUIBB COMPANY-2022-106612

PATIENT
  Age: 92 Year
  Sex: Male

DRUGS (1)
  1. REVLIMID [Suspect]
     Active Substance: LENALIDOMIDE
     Indication: Plasma cell myeloma
     Dosage: FREQ: TAKE 1 WHOLE CAPSULE BY MOUTH WITH WATER AT THE SAME TIME EACH DAY ON DAYS 1-21 OF EACH 28 DAY
     Route: 048
     Dates: start: 20220815

REACTIONS (1)
  - Rash [Not Recovered/Not Resolved]
